FAERS Safety Report 15598936 (Version 3)
Quarter: 2018Q4

REPORT INFORMATION
  Report Type: Report from Study
  Country: None (occurrence: IL)
  Receive Date: 20181108
  Receipt Date: 20181119
  Transmission Date: 20190205
  Serious: Yes (Hospitalization, Other)
  Sender: FDA-Public Use
  Company Number: IL-ABBVIE-18S-082-2544003-00

PATIENT
  Sex: Male

DRUGS (2)
  1. DUODOPA [Suspect]
     Active Substance: CARBIDOPA\LEVODOPA
     Dosage: CURRENT MD- 16 ML, CURRENT FR- 4.5 ML/ HOUR, CURRENT ED- 2.0 ML
     Route: 050
  2. DUODOPA [Suspect]
     Active Substance: CARBIDOPA\LEVODOPA
     Indication: PARKINSON^S DISEASE
     Dosage: CURRENT MORNING DOSE 20ML,?CURRENT CONTINUOUS DOSE 5.1ML/HOUR,?CURRENT EXTRA DOSE 2ML
     Route: 050
     Dates: start: 20171223

REACTIONS (3)
  - Cholecystectomy [Unknown]
  - Dyskinesia [Not Recovered/Not Resolved]
  - Post procedural infection [Not Recovered/Not Resolved]

NARRATIVE: CASE EVENT DATE: 2018
